FAERS Safety Report 9152501 (Version 2)
Quarter: 2013Q3

REPORT INFORMATION
  Report Type: Report from Study
  Country: BR (occurrence: BR)
  Receive Date: 20130308
  Receipt Date: 20130808
  Transmission Date: 20140515
  Serious: Yes (Death, Hospitalization)
  Sender: FDA-Public Use
  Company Number: BR-ABBOTT-13P-020-1060574-00

PATIENT
  Age: 69 Year
  Sex: Female

DRUGS (3)
  1. HUMIRA [Suspect]
     Indication: RHEUMATOID ARTHRITIS
     Route: 058
  2. CALCIUM [Concomitant]
     Indication: PRODUCT USED FOR UNKNOWN INDICATION
  3. UNKNOWN MEDICATION [Concomitant]
     Indication: HYPERTENSION
     Dosage: HALF TABLET

REACTIONS (5)
  - Renal failure acute [Fatal]
  - Renal failure chronic [Fatal]
  - Respiratory failure [Fatal]
  - Pleural effusion [Unknown]
  - Blood pressure fluctuation [Unknown]
